FAERS Safety Report 17511029 (Version 2)
Quarter: 2020Q2

REPORT INFORMATION
  Report Type: Report from Study
  Country: US (occurrence: US)
  Receive Date: 20200306
  Receipt Date: 20200420
  Transmission Date: 20200713
  Serious: Yes (Hospitalization)
  Sender: FDA-Public Use
  Company Number: US-ACTELION-A-US2020-202636

PATIENT
  Age: 62 Year
  Sex: Female

DRUGS (2)
  1. OPSUMIT [Suspect]
     Active Substance: MACITENTAN
     Indication: PULMONARY ARTERIAL HYPERTENSION
     Dosage: 10 MG, QD
     Route: 048
     Dates: start: 20200130
  2. UPTRAVI [Suspect]
     Active Substance: SELEXIPAG
     Indication: PULMONARY ARTERIAL HYPERTENSION
     Dosage: 800MCG AND 200MCG, BID
     Route: 048
     Dates: start: 20190831

REACTIONS (3)
  - Blood count abnormal [Unknown]
  - Oxygen saturation decreased [Unknown]
  - Transfusion [Unknown]

NARRATIVE: CASE EVENT DATE: 202002
